FAERS Safety Report 21886247 (Version 1)
Quarter: 2023Q1

REPORT INFORMATION
  Report Type: Spontaneous
  Country: US (occurrence: None)
  Receive Date: 20230119
  Receipt Date: 20230119
  Transmission Date: 20230417
  Serious: No
  Sender: FDA-Public Use
  Company Number: None

PATIENT
  Age: 21 Year
  Sex: Female
  Weight: 67.13 kg

DRUGS (1)
  1. MIRENA [Suspect]
     Active Substance: LEVONORGESTREL

REACTIONS (9)
  - Mood swings [None]
  - Depression [None]
  - Suicidal ideation [None]
  - Anxiety [None]
  - Panic attack [None]
  - Alopecia [None]
  - Fatigue [None]
  - Headache [None]
  - Anger [None]

NARRATIVE: CASE EVENT DATE: 20221024
